FAERS Safety Report 9338295 (Version 1)
Quarter: 2013Q2

REPORT INFORMATION
  Report Type: Spontaneous
  Country: US (occurrence: US)
  Receive Date: 20130610
  Receipt Date: 20130610
  Transmission Date: 20140414
  Serious: Yes (Life-Threatening, Other)
  Sender: FDA-Public Use
  Company Number: US-ROXANE LABORATORIES, INC.-2013-RO-00906RO

PATIENT
  Age: 31 Year
  Sex: Male

DRUGS (5)
  1. METHADONE [Suspect]
     Indication: DRUG DEPENDENCE
     Route: 048
  2. MORPHINE [Suspect]
  3. INTERFERON [Suspect]
     Indication: HEPATITIS C
  4. RIBAVIRIN [Suspect]
     Indication: HEPATITIS C
  5. FLUNITRAZEPAM [Suspect]
     Route: 048

REACTIONS (2)
  - Suicide attempt [Recovered/Resolved]
  - Depression [Unknown]
